FAERS Safety Report 15635016 (Version 1)
Quarter: 2018Q4

REPORT INFORMATION
  Report Type: Report from Study
  Country: US (occurrence: US)
  Receive Date: 20181119
  Receipt Date: 20181119
  Transmission Date: 20190205
  Serious: Yes (Hospitalization, Other)
  Sender: FDA-Public Use
  Company Number: US-AMGEN-USASL2018163484

PATIENT
  Age: 67 Year
  Sex: Male

DRUGS (1)
  1. ENBREL [Suspect]
     Active Substance: ETANERCEPT
     Indication: RHEUMATOID ARTHRITIS
     Dosage: 50 MG, QWK
     Route: 065
     Dates: end: 201810

REACTIONS (9)
  - Renal impairment [Unknown]
  - Asthenia [Unknown]
  - Dehydration [Unknown]
  - Blood pressure decreased [Unknown]
  - Arthralgia [Unknown]
  - Vomiting [Unknown]
  - Diarrhoea [Unknown]
  - Speech disorder [Unknown]
  - Loss of consciousness [Unknown]

NARRATIVE: CASE EVENT DATE: 201810
